FAERS Safety Report 5087398-9 (Version None)
Quarter: 2006Q3

REPORT INFORMATION
  Report Type: 
  Country: None (occurrence: None)
  Receive Date: 20060727
  Receipt Date: 20060519
  Transmission Date: 20061208
  Serious: Yes (Other)
  Sender: FDA-Public Use
  Company Number: 2006066156

PATIENT
  Sex: Female

DRUGS (2)
  1. LYRICA [Suspect]
     Indication: ILL-DEFINED DISORDER
     Dosage: 150 MG (75 MG, 2 IN 1 D)
  2. ESTRATEST [Concomitant]

REACTIONS (4)
  - FATIGUE [None]
  - MYALGIA [None]
  - SOMNOLENCE [None]
  - WEIGHT INCREASED [None]
